FAERS Safety Report 7604491-4 (Version None)
Quarter: 2011Q3

REPORT INFORMATION
  Report Type: 
  Country: None (occurrence: None)
  Receive Date: 20110712
  Receipt Date: 20110629
  Transmission Date: 20111222
  Serious: Yes (Other)
  Sender: FDA-Public Use
  Company Number: RO-UCBSA-027205

PATIENT
  Age: 43 Year
  Sex: Male

DRUGS (1)
  1. NEUPRO [Suspect]
     Indication: PARKINSON'S DISEASE
     Route: 062

REACTIONS (2)
  - PREGNANCY OF PARTNER [None]
  - MISCARRIAGE OF PARTNER [None]
